FAERS Safety Report 19972395 (Version 1)
Quarter: 2021Q4

REPORT INFORMATION
  Report Type: Spontaneous
  Country: JP (occurrence: JP)
  Receive Date: 20211020
  Receipt Date: 20211020
  Transmission Date: 20220303
  Serious: Yes (Death, Hospitalization, Other)
  Sender: FDA-Public Use
  Company Number: JP-002147023-NVSJ2021JP016568

PATIENT

DRUGS (7)
  1. RUXOLITINIB [Suspect]
     Active Substance: RUXOLITINIB
     Indication: Myelofibrosis
     Dosage: 5 MG
     Route: 048
  2. RUXOLITINIB [Suspect]
     Active Substance: RUXOLITINIB
     Dosage: 10 MG
     Route: 048
  3. AZACITIDINE [Suspect]
     Active Substance: AZACITIDINE
     Indication: Myelofibrosis
     Dosage: 75 MG/M2
     Route: 058
  4. CYTARABINE [Suspect]
     Active Substance: CYTARABINE
     Indication: Myelofibrosis
     Dosage: 20 MG
     Route: 058
  5. ACLARUBICIN HYDROCHLORIDE [Suspect]
     Active Substance: ACLARUBICIN HYDROCHLORIDE
     Indication: Myelofibrosis
     Dosage: 14 MG/M2
     Route: 065
  6. HUMAN RED BLOOD CELL [Concomitant]
     Active Substance: HUMAN RED BLOOD CELL
     Indication: Product used for unknown indication
     Dosage: UNK
     Route: 065
  7. PLATELETS [Concomitant]
     Active Substance: HUMAN PLATELET, ALLOGENIC
     Indication: Product used for unknown indication
     Dosage: UNK
     Route: 065

REACTIONS (6)
  - Myelodysplastic syndrome [Unknown]
  - Transformation to acute myeloid leukaemia [Fatal]
  - Haemoglobin decreased [Unknown]
  - Pallor [Unknown]
  - Platelet count decreased [Unknown]
  - Concomitant disease progression [Unknown]
